FAERS Safety Report 7442113-6 (Version None)
Quarter: 2011Q2

REPORT INFORMATION
  Report Type: 
  Country: None (occurrence: None)
  Receive Date: 20110428
  Receipt Date: 20110408
  Transmission Date: 20111010
  Serious: Yes (Hospitalization)
  Sender: FDA-Public Use
  Company Number: US-BAYER-201016529NA

PATIENT
  Age: 39 Year
  Sex: Female
  Weight: 79.365 kg

DRUGS (15)
  1. YAZ [Suspect]
     Indication: MENSTRUATION IRREGULAR
     Dosage: UNK
     Route: 048
  2. VICODIN [Concomitant]
  3. ZANAFLEX [Concomitant]
  4. SEROQUEL [Concomitant]
  5. ZITHROMAX [Concomitant]
  6. YAZ [Suspect]
     Indication: OVARIAN CYST
  7. YAZ [Suspect]
     Indication: PREMENSTRUAL SYNDROME
  8. WELLBUTRIN XL [Concomitant]
  9. FROVA [Concomitant]
  10. SONATA [Concomitant]
  11. AMBIEN [Concomitant]
  12. DARVOCET [Concomitant]
  13. ELETRIPTAN HYDROBROMIDE [Concomitant]
  14. NADOLOL [Concomitant]
  15. NSAID'S [Concomitant]

REACTIONS (2)
  - CHEST PAIN [None]
  - PORTAL VEIN THROMBOSIS [None]
